FAERS Safety Report 8241116-1 (Version None)
Quarter: 2012Q1

REPORT INFORMATION
  Report Type: 
  Country: None (occurrence: None)
  Receive Date: 20120328
  Receipt Date: 20120323
  Transmission Date: 20120608
  Serious: Yes (Hospitalization)
  Sender: FDA-Public Use
  Company Number: JP-GLAXOSMITHKLINE-B0791361A

PATIENT
  Age: 25 Year
  Sex: Female

DRUGS (3)
  1. MUCODYNE [Concomitant]
     Route: 048
     Dates: start: 20120322
  2. FLUTICASONE PROPIONATE/SALMETEROL [Suspect]
     Indication: ASTHMA
     Dosage: 14IUAX PER DAY
     Route: 055
     Dates: start: 20120322
  3. ZITHROMAX [Concomitant]
     Route: 048
     Dates: start: 20120322

REACTIONS (2)
  - PALPITATIONS [None]
  - OVERDOSE [None]
